FAERS Safety Report 13003248 (Version 1)
Quarter: 2016Q4

REPORT INFORMATION
  Report Type: Spontaneous
  Country: US (occurrence: US)
  Receive Date: 20161206
  Receipt Date: 20161206
  Transmission Date: 20170207
  Serious: Yes (Other)
  Sender: FDA-Public Use
  Company Number: US-ALLERGAN-1678433CX

PATIENT
  Age: 35 Year
  Sex: Female

DRUGS (5)
  1. SKINMEDICA TNS RECOVERY COMPLEX [Suspect]
     Active Substance: COSMETICS
     Indication: PROPHYLAXIS
     Dosage: UNK, BID
     Route: 061
     Dates: start: 201607, end: 201611
  2. CERAVE MOISTURIZER [Concomitant]
     Active Substance: OCTINOXATE\TITANIUM DIOXIDE\ZINC OXIDE
     Indication: PROPHYLAXIS
     Route: 061
  3. CETAPHIL CLEANSER [Concomitant]
     Indication: PROPHYLAXIS
     Dosage: UNK
     Route: 061
  4. REVISION INTELLISHADE SPF 47 [Concomitant]
     Indication: PROPHYLAXIS
     Dosage: UNK
     Route: 061
  5. BIRTH CONTROL PILL [Concomitant]
     Active Substance: UNSPECIFIED INGREDIENT
     Indication: CONTRACEPTION
     Dosage: UNK
     Route: 048

REACTIONS (1)
  - Basal cell carcinoma [Recovered/Resolved]

NARRATIVE: CASE EVENT DATE: 201611
